FAERS Safety Report 20192514 (Version 1)
Quarter: 2021Q4

REPORT INFORMATION
  Report Type: Spontaneous
  Country: US (occurrence: US)
  Receive Date: 20211216
  Receipt Date: 20211216
  Transmission Date: 20220303
  Serious: Yes (Hospitalization, Other)
  Sender: FDA-Public Use
  Company Number: US-Accord-246004

PATIENT
  Age: 15 Year
  Sex: Female

DRUGS (2)
  1. FLUOXETINE [Interacting]
     Active Substance: FLUOXETINE HYDROCHLORIDE
     Indication: Major depression
     Dosage: INCREASED TO 40 MG/DAY
  2. INSULIN ASPART [Interacting]
     Active Substance: INSULIN ASPART
     Indication: Type 1 diabetes mellitus
     Dosage: INSULIN PUMP

REACTIONS (2)
  - Serum sickness-like reaction [Recovered/Resolved]
  - Drug interaction [Unknown]
